FAERS Safety Report 17508031 (Version 2)
Quarter: 2020Q1

REPORT INFORMATION
  Report Type: Spontaneous
  Country: US (occurrence: US)
  Receive Date: 20200306
  Receipt Date: 20200324
  Transmission Date: 20200409
  Serious: Yes (Other)
  Sender: FDA-Public Use
  Company Number: US-SA-2020SA053520

PATIENT
  Age: 53 Year
  Sex: Female

DRUGS (12)
  1. FLUOROURACIL. [Concomitant]
     Active Substance: FLUOROURACIL
     Indication: SMALL INTESTINE CARCINOMA METASTATIC
     Dosage: 2400 MG/M2
     Route: 042
     Dates: end: 20120118
  2. FOLINIC ACID [Concomitant]
     Active Substance: LEUCOVORIN
     Indication: SIGNET-RING CELL CARCINOMA
     Dosage: 200 MG/M2, QCY
     Dates: start: 20110907, end: 20120118
  3. FLUOROURACIL. [Concomitant]
     Active Substance: FLUOROURACIL
     Indication: METASTASES TO LYMPH NODES
  4. OXALIPLATIN. [Suspect]
     Active Substance: OXALIPLATIN
     Indication: SMALL INTESTINE CARCINOMA METASTATIC
     Dosage: ONCE EVERY 2 WEEKS
     Dates: start: 20110907, end: 20120118
  5. OXALIPLATIN. [Suspect]
     Active Substance: OXALIPLATIN
     Indication: ADENOCARCINOMA
  6. FOLINIC ACID [Concomitant]
     Active Substance: LEUCOVORIN
     Indication: METASTASES TO LYMPH NODES
  7. FOLINIC ACID [Concomitant]
     Active Substance: LEUCOVORIN
     Indication: SMALL INTESTINE CARCINOMA METASTATIC
  8. OXALIPLATIN. [Suspect]
     Active Substance: OXALIPLATIN
     Indication: METASTASES TO LYMPH NODES
  9. OXALIPLATIN. [Suspect]
     Active Substance: OXALIPLATIN
     Indication: SIGNET-RING CELL CARCINOMA
     Dosage: DOSE REDUCTION OF OXALIPLATIN BY 50%
  10. FLUOROURACIL. [Concomitant]
     Active Substance: FLUOROURACIL
     Indication: SIGNET-RING CELL CARCINOMA
     Dosage: 400 MG/M2, QCY
     Route: 040
     Dates: start: 20110907, end: 20120118
  11. FLUOROURACIL. [Concomitant]
     Active Substance: FLUOROURACIL
     Indication: ADENOCARCINOMA
  12. FOLINIC ACID [Concomitant]
     Active Substance: LEUCOVORIN
     Indication: ADENOCARCINOMA

REACTIONS (2)
  - Neuropathy peripheral [Unknown]
  - Bone marrow failure [Unknown]
